FAERS Safety Report 7271855-0 (Version None)
Quarter: 2011Q1

REPORT INFORMATION
  Report Type: 
  Country: None (occurrence: None)
  Receive Date: 20110126
  Receipt Date: 20110113
  Transmission Date: 20110831
  Serious: Yes (Hospitalization)
  Sender: FDA-Public Use
  Company Number: JP-004521

PATIENT
  Age: 3 Year
  Sex: Female

DRUGS (1)
  1. DESMOPRESSIN (1-AMINO-8-D-ARGININE-VASOPRESSIN) [Suspect]
     Indication: HORMONE REPLACEMENT THERAPY
     Dates: start: 20050101

REACTIONS (8)
  - OSMOTIC DEMYELINATION SYNDROME [None]
  - HYPONATRAEMIA [None]
  - HYPERHIDROSIS [None]
  - APALLIC SYNDROME [None]
  - CONVULSION [None]
  - BODY TEMPERATURE FLUCTUATION [None]
  - DEPRESSED LEVEL OF CONSCIOUSNESS [None]
  - DEHYDRATION [None]
